FAERS Safety Report 15141991 (Version 1)
Quarter: 2018Q3

REPORT INFORMATION
  Report Type: Spontaneous
  Country: US (occurrence: US)
  Receive Date: 20180713
  Receipt Date: 20180713
  Transmission Date: 20181010
  Serious: Yes (Hospitalization, Other)
  Sender: FDA-Public Use
  Company Number: US-AUROBINDO-AUR-APL-2018-034090

PATIENT
  Age: 21 Year
  Sex: Female

DRUGS (3)
  1. DIVALPROEX [Suspect]
     Active Substance: DIVALPROEX SODIUM
     Indication: EPILEPSY
     Dosage: ()
     Route: 065
  2. TOPIRAMATE. [Suspect]
     Active Substance: TOPIRAMATE
     Indication: AFFECTIVE DISORDER
     Dosage: ()
     Route: 065
  3. LEVETIRACETAM. [Concomitant]
     Active Substance: LEVETIRACETAM
     Indication: AFFECTIVE DISORDER
     Dosage: ()

REACTIONS (2)
  - Hyperammonaemic encephalopathy [Recovered/Resolved]
  - Respiratory failure [Recovered/Resolved]
